FAERS Safety Report 7180283-8 (Version None)
Quarter: 2010Q4

REPORT INFORMATION
  Report Type: 
  Country: None (occurrence: None)
  Receive Date: 20101221
  Receipt Date: 20101210
  Transmission Date: 20110411
  Serious: Yes (Hospitalization)
  Sender: FDA-Public Use
  Company Number: DE-TEVA-259919GER

PATIENT
  Sex: Female

DRUGS (1)
  1. AMLODIPINE [Suspect]

REACTIONS (2)
  - GENERAL PHYSICAL HEALTH DETERIORATION [None]
  - MEDICATION ERROR [None]
